FAERS Safety Report 4271731-1 (Version None)
Quarter: 2004Q1

REPORT INFORMATION
  Report Type: 
  Country: None (occurrence: None)
  Receive Date: 20040113
  Receipt Date: 20040102
  Transmission Date: 20041129
  Serious: No
  Sender: FDA-Public Use
  Company Number: 04P-098-0246299-00

PATIENT
  Age: 51 Year
  Sex: Female

DRUGS (2)
  1. VALPROATE SODIUM [Suspect]
     Indication: PARTIAL SEIZURES
  2. TOPIRAMATE [Suspect]
     Indication: PARTIAL SEIZURES

REACTIONS (2)
  - DRUG INTERACTION [None]
  - HEPATIC FAILURE [None]
